FAERS Safety Report 9629286 (Version 2)
Quarter: 2014Q2

REPORT INFORMATION
  Report Type: Spontaneous
  Country: US (occurrence: US)
  Receive Date: 20131017
  Receipt Date: 20140617
  Transmission Date: 20141212
  Serious: Yes (Other)
  Sender: FDA-Public Use
  Company Number: US-PFIZER INC-2013296128

PATIENT
  Age: 62 Year
  Sex: Female
  Weight: 83 kg

DRUGS (2)
  1. LIPITOR [Suspect]
     Indication: LOW DENSITY LIPOPROTEIN INCREASED
     Dosage: 40 MG, AT BED TIME
     Route: 048
     Dates: start: 20060602, end: 20080205
  2. LIPITOR [Suspect]
     Indication: CARDIOVASCULAR EVENT PROPHYLAXIS
     Dosage: 80 MG, AT BED TIME
     Route: 048
     Dates: start: 20080206, end: 20110306

REACTIONS (8)
  - Type 2 diabetes mellitus [Not Recovered/Not Resolved]
  - Neuropathic arthropathy [Unknown]
  - Osteomyelitis [Unknown]
  - Diabetic foot [Not Recovered/Not Resolved]
  - Diabetic neuropathy [Not Recovered/Not Resolved]
  - Neuropathy peripheral [Not Recovered/Not Resolved]
  - Impaired healing [Not Recovered/Not Resolved]
  - Skin infection [Unknown]
